FAERS Safety Report 25497329 (Version 1)
Quarter: 2025Q3

REPORT INFORMATION
  Report Type: Spontaneous
  Country: US (occurrence: US)
  Receive Date: 20250701
  Receipt Date: 20250701
  Transmission Date: 20251021
  Serious: No
  Sender: ABBVIE
  Company Number: US-ABBVIE-6350409

PATIENT
  Sex: Male

DRUGS (4)
  1. DEPAKOTE [Suspect]
     Active Substance: DIVALPROEX SODIUM
     Indication: Bipolar disorder
     Route: 048
  2. CAPLYTA [Suspect]
     Active Substance: LUMATEPERONE
     Indication: Bipolar disorder
     Route: 048
  3. EFFEXOR [Suspect]
     Active Substance: VENLAFAXINE HYDROCHLORIDE
     Indication: Bipolar disorder
  4. KLONOPIN [Suspect]
     Active Substance: CLONAZEPAM
     Indication: Bipolar disorder

REACTIONS (2)
  - Dysarthria [Unknown]
  - Dizziness [Unknown]
